FAERS Safety Report 17219336 (Version 1)
Quarter: 2019Q4

REPORT INFORMATION
  Report Type: Spontaneous
  Country: US (occurrence: US)
  Receive Date: 20191209
  Receipt Date: 20191209
  Transmission Date: 20200122
  Serious: Yes (Death)
  Sender: FDA-Public Use
  Company Number: None

PATIENT
  Age: 49 Year
  Sex: Male
  Weight: 112 kg

DRUGS (1)
  1. DIVALPROEX (DIVALPROOEX NA 500MG TAB SA [Suspect]
     Active Substance: DIVALPROEX SODIUM
     Indication: BIPOLAR I DISORDER
     Route: 048
     Dates: start: 20190602, end: 20190717

REACTIONS (2)
  - Idiosyncratic drug reaction [None]
  - Hepatic failure [None]

NARRATIVE: CASE EVENT DATE: 20190717
